FAERS Safety Report 9231482 (Version 1)
Quarter: 2013Q2

REPORT INFORMATION
  Report Type: Spontaneous
  Country: US (occurrence: US)
  Receive Date: 20130415
  Receipt Date: 20130415
  Transmission Date: 20140414
  Serious: Yes (Death)
  Sender: FDA-Public Use
  Company Number: US-GLAXOSMITHKLINE-A1019879A

PATIENT
  Age: 58 Year
  Sex: Female

DRUGS (9)
  1. VOTRIENT [Suspect]
     Indication: RENAL CANCER
     Dosage: 800MG PER DAY
     Route: 048
     Dates: start: 20130116, end: 201302
  2. COZAAR [Concomitant]
  3. WARFARIN SODIUM [Concomitant]
  4. SODIUM BICARBONATE [Concomitant]
  5. ALLEGRA [Concomitant]
  6. FLONASE [Concomitant]
  7. GLIMEPIRIDE [Concomitant]
  8. SYNTHROID [Concomitant]
  9. AVASTIN (BEVACIZUMAB) [Concomitant]

REACTIONS (1)
  - Death [Fatal]
